FAERS Safety Report 17492213 (Version 1)
Quarter: 2020Q1

REPORT INFORMATION
  Report Type: Spontaneous
  Country: US (occurrence: US)
  Receive Date: 20200304
  Receipt Date: 20200304
  Transmission Date: 20200409
  Serious: No
  Sender: FDA-Public Use
  Company Number: US-TEVA-2020-US-1191194

PATIENT
  Sex: Female
  Weight: 74 kg

DRUGS (5)
  1. AUSTEDO [Suspect]
     Active Substance: DEUTETRABENAZINE
     Indication: HUNTINGTON^S DISEASE
     Dosage: 36 MILLIGRAM DAILY;
     Route: 048
     Dates: start: 2017
  2. IRON 160(50) MG TABLET SA [Concomitant]
  3. AMLODIPINE BESYLATE 10 MG TABLET [Concomitant]
     Active Substance: AMLODIPINE BESYLATE
  4. VITAMIN E 1000 UNIT CAPSULE [Concomitant]
  5. BENAZEPRIL HCL 20 MG TABLET [Concomitant]

REACTIONS (2)
  - Balance disorder [Unknown]
  - Inappropriate schedule of product administration [Unknown]
